FAERS Safety Report 6316582-9 (Version None)
Quarter: 2009Q3

REPORT INFORMATION
  Report Type: 
  Country: None (occurrence: None)
  Receive Date: 20090820
  Receipt Date: 20090813
  Transmission Date: 20100115
  Serious: Yes (Other)
  Sender: FDA-Public Use
  Company Number: PHHY2009BR27321

PATIENT
  Sex: Male

DRUGS (3)
  1. EXELON [Suspect]
     Indication: MEMORY IMPAIRMENT
     Dosage: 1 PATCH (18MG/10CM2) PER DAY
     Route: 062
     Dates: start: 20040101
  2. MEMANTINE HCL [Concomitant]
     Indication: MEMORY IMPAIRMENT
     Dosage: 10 MG, BID
     Route: 048
     Dates: start: 20030101
  3. EBIXA [Concomitant]
     Indication: MEMORY IMPAIRMENT
     Dosage: 1 TABLET IN THE MORNING
     Route: 048

REACTIONS (4)
  - HERPES VIRUS INFECTION [None]
  - INCORRECT DRUG ADMINISTRATION DURATION [None]
  - PRURITUS [None]
  - WEIGHT DECREASED [None]
